FAERS Safety Report 10159416 (Version 1)
Quarter: 2014Q2

REPORT INFORMATION
  Report Type: Report from Study
  Country: CN (occurrence: CN)
  Receive Date: 20140508
  Receipt Date: 20140508
  Transmission Date: 20141212
  Serious: Yes (Death)
  Sender: FDA-Public Use
  Company Number: CN-ASTELLAS-2014US004907

PATIENT
  Age: 49 Year
  Sex: Female

DRUGS (1)
  1. ERLOTINIB [Suspect]
     Indication: NON-SMALL CELL LUNG CANCER
     Route: 048
     Dates: start: 20130606

REACTIONS (2)
  - Dyspnoea [Fatal]
  - Palpitations [Fatal]
